FAERS Safety Report 23408451 (Version 2)
Quarter: 2024Q3

REPORT INFORMATION
  Report Type: Spontaneous
  Country: GB (occurrence: GB)
  Receive Date: 20240117
  Receipt Date: 20240730
  Transmission Date: 20241017
  Serious: Yes (Other)
  Sender: CHATTEM
  Company Number: GB-OPELLA-2024OHG001348

PATIENT
  Sex: Male

DRUGS (1)
  1. DULCOLAX STIMULANT LAXATIVE [Suspect]
     Active Substance: BISACODYL
     Indication: Product used for unknown indication

REACTIONS (3)
  - Drug dependence [Unknown]
  - Incorrect product administration duration [Unknown]
  - No adverse event [Unknown]
